FAERS Safety Report 9213350 (Version 5)
Quarter: 2014Q1

REPORT INFORMATION
  Report Type: Report from Study
  Country: CA (occurrence: CA)
  Receive Date: 20130405
  Receipt Date: 20140322
  Transmission Date: 20141002
  Serious: Yes (Hospitalization, Other)
  Sender: FDA-Public Use
  Company Number: PHHY2012CA044340

PATIENT
  Sex: Male

DRUGS (1)
  1. SANDOSTATIN LAR [Suspect]
     Indication: PANCREATIC NEUROENDOCRINE TUMOUR METASTATIC
     Dosage: 30 MG, EVERY FOUR WEEKS
     Route: 030
     Dates: start: 20111105

REACTIONS (8)
  - Nasopharyngitis [Recovering/Resolving]
  - Dyspnoea [Unknown]
  - Metastases to liver [Unknown]
  - Headache [Recovering/Resolving]
  - Hypokinesia [Unknown]
  - Stress [Not Recovered/Not Resolved]
  - Blood pressure increased [Unknown]
  - Asthenia [Not Recovered/Not Resolved]
